FAERS Safety Report 6547369-X (Version None)
Quarter: 2010Q1

REPORT INFORMATION
  Report Type: 
  Country: None (occurrence: None)
  Receive Date: 20100119
  Receipt Date: 20100107
  Transmission Date: 20100710
  Serious: Yes (Other)
  Sender: FDA-Public Use
  Company Number: ADR-280-054

PATIENT
  Age: 25 Year
  Sex: Female
  Weight: 87.9978 kg

DRUGS (1)
  1. TOPIRAMATE [Suspect]
     Indication: EPILEPSY
     Dosage: 100 MG BID, ORAL
     Route: 048
     Dates: start: 20090704, end: 20090707

REACTIONS (3)
  - CONVULSION [None]
  - HALLUCINATION [None]
  - PRODUCT SUBSTITUTION ISSUE [None]
